FAERS Safety Report 21916019 (Version 1)
Quarter: 2023Q1

REPORT INFORMATION
  Report Type: Spontaneous
  Country: CG (occurrence: CG)
  Receive Date: 20230126
  Receipt Date: 20230126
  Transmission Date: 20230417
  Serious: Yes (Other)
  Sender: FDA-Public Use
  Company Number: CG-GLAXOSMITHKLINE-CG2023GSK009899

PATIENT

DRUGS (7)
  1. ACETAMINOPHEN [Suspect]
     Active Substance: ACETAMINOPHEN
     Indication: Abdominal pain
     Dosage: 1 G, BID
  2. CEFTRIAXONE [Suspect]
     Active Substance: CEFTRIAXONE
     Indication: Product used for unknown indication
     Dosage: 2 G/24 HR
  3. ALBUTEROL [Suspect]
     Active Substance: ALBUTEROL
     Indication: Threatened labour
     Dosage: 1.5 MG
  4. DEXTROSE [Suspect]
     Active Substance: DEXTROSE
     Indication: Threatened labour
     Dosage: 500 ML
  5. ARTESUNATE [Suspect]
     Active Substance: ARTESUNATE
     Indication: Product used for unknown indication
     Dosage: 140 MG
  6. PHLOROGLUCINOL [Suspect]
     Active Substance: PHLOROGLUCINOL
     Indication: Product used for unknown indication
     Dosage: 80 MG, BID
  7. TRAMADOL [Suspect]
     Active Substance: TRAMADOL
     Indication: Abdominal pain
     Dosage: 100 MG, BID

REACTIONS (5)
  - Ectopic pregnancy [Unknown]
  - Premature delivery [Unknown]
  - Drug ineffective [Unknown]
  - Exposure during pregnancy [Unknown]
  - Live birth [Unknown]
